FAERS Safety Report 13772310 (Version 1)
Quarter: 2017Q3

REPORT INFORMATION
  Report Type: Spontaneous
  Country: IT (occurrence: IT)
  Receive Date: 20170720
  Receipt Date: 20170720
  Transmission Date: 20171127
  Serious: Yes (Hospitalization)
  Sender: FDA-Public Use
  Company Number: IT-BAYER-2017-138530

PATIENT
  Age: 86 Year
  Sex: Male
  Weight: 75 kg

DRUGS (8)
  1. CARDIOASPIRIN 100 MG [Suspect]
     Active Substance: ASPIRIN
     Indication: PROPHYLAXIS
     Dosage: 100 MG, QD
     Route: 048
     Dates: start: 20000101, end: 20170624
  2. FUROSEMIDE. [Concomitant]
     Active Substance: FUROSEMIDE
     Dosage: 75 MG, QD
     Route: 048
  3. TERAZOSIN HYDROCHLORIDE. [Concomitant]
     Active Substance: TERAZOSIN HYDROCHLORIDE
     Indication: BENIGN PROSTATIC HYPERPLASIA
     Dosage: 5 MG, QD
     Route: 048
  4. POTASSIUM CANRENOATE [Concomitant]
     Active Substance: CANRENOATE POTASSIUM
     Dosage: 50 MG, QD
     Route: 048
  5. OMEPRAZOLE. [Concomitant]
     Active Substance: OMEPRAZOLE
     Dosage: 20 MG, QD
     Route: 048
  6. RAMIPRIL. [Concomitant]
     Active Substance: RAMIPRIL
     Dosage: 5 MG, QD
     Route: 048
  7. BISOPROLOL FUMARATE. [Concomitant]
     Active Substance: BISOPROLOL FUMARATE
     Dosage: 5 MG, QD
     Route: 048
  8. PRADAXA [Suspect]
     Active Substance: DABIGATRAN ETEXILATE MESYLATE
     Indication: PROPHYLAXIS
     Dosage: 220 MG, QD
     Route: 048
     Dates: start: 20161001, end: 20170624

REACTIONS (2)
  - Haemorrhagic anaemia [Recovering/Resolving]
  - Intestinal haemorrhage [Recovering/Resolving]

NARRATIVE: CASE EVENT DATE: 20170622
